FAERS Safety Report 8184760-2 (Version None)
Quarter: 2012Q1

REPORT INFORMATION
  Report Type: 
  Country: None (occurrence: None)
  Receive Date: 20120305
  Receipt Date: 20120305
  Transmission Date: 20120608
  Serious: Yes (Congenital Anomaly)
  Sender: FDA-Public Use
  Company Number: None

PATIENT
  Age: 28 Year
  Sex: Female
  Weight: 84.821 kg

DRUGS (1)
  1. QUETIAPINE [Suspect]

REACTIONS (6)
  - PULMONARY HYPERTENSION [None]
  - UMBILICAL CORD ABNORMALITY [None]
  - GRUNTING [None]
  - MECONIUM STAIN [None]
  - MATERNAL DRUGS AFFECTING FOETUS [None]
  - PREMATURE BABY [None]
